FAERS Safety Report 8363314-9 (Version None)
Quarter: 2012Q2

REPORT INFORMATION
  Report Type: 
  Country: None (occurrence: None)
  Receive Date: 20120516
  Receipt Date: 20120514
  Transmission Date: 20120825
  Serious: Yes (Death)
  Sender: FDA-Public Use
  Company Number: US-PFIZER INC-2012117321

PATIENT
  Sex: Male

DRUGS (12)
  1. AMLODIPINE [Concomitant]
     Dosage: UNK
  2. LEVOXYL [Concomitant]
     Dosage: UNK
  3. SUTENT [Suspect]
     Indication: RENAL CANCER
     Dosage: 50 MG, 1X/DAY
     Route: 048
     Dates: start: 20120402
  4. HYDROCODONE [Concomitant]
     Dosage: UNK
  5. SIMVASTATIN [Concomitant]
     Dosage: UNK
  6. BENAZEPRIL [Concomitant]
     Dosage: UNK
  7. ACETYLSALICYLIC ACID [Concomitant]
     Dosage: UNK
  8. ACETAMINOPHEN [Concomitant]
     Dosage: UNK
  9. LISINOPRIL [Concomitant]
     Dosage: UNK
  10. ZOLPIDEM [Concomitant]
     Dosage: UNK
  11. METOPROLOL [Concomitant]
     Dosage: UNK
  12. MORPHINE [Concomitant]
     Dosage: UNK

REACTIONS (1)
  - DEATH [None]
